FAERS Safety Report 5027117-5 (Version None)
Quarter: 2006Q2

REPORT INFORMATION
  Report Type: 
  Country: None (occurrence: None)
  Receive Date: 20060609
  Receipt Date: 20060530
  Transmission Date: 20061013
  Serious: Yes (Hospitalization)
  Sender: FDA-Public Use
  Company Number: 165908

PATIENT
  Age: 51 Year
  Sex: Female
  Weight: 84.8226 kg

DRUGS (4)
  1. AVONEX [Suspect]
     Indication: MULTIPLE SCLEROSIS
     Dosage: 30 UG; QW; IM
     Route: 030
     Dates: start: 20000101
  2. ZANAFLEX [Concomitant]
  3. SYNTHROID [Concomitant]
  4. AMANTADINE HCL [Concomitant]

REACTIONS (12)
  - CONDITION AGGRAVATED [None]
  - DECUBITUS ULCER [None]
  - DYSPEPSIA [None]
  - FALL [None]
  - GASTROOESOPHAGEAL REFLUX DISEASE [None]
  - INCREASED TENDENCY TO BRUISE [None]
  - INTERVERTEBRAL DISC DEGENERATION [None]
  - MOVEMENT DISORDER [None]
  - NERVE INJURY [None]
  - PAIN IN EXTREMITY [None]
  - SCOLIOSIS [None]
  - SENSORY LOSS [None]
